FAERS Safety Report 9851652 (Version 1)
Quarter: 2014Q1

REPORT INFORMATION
  Report Type: Spontaneous
  Country: IT (occurrence: IT)
  Receive Date: 20140129
  Receipt Date: 20140129
  Transmission Date: 20141002
  Serious: Yes (Other)
  Sender: FDA-Public Use
  Company Number: IT-MERCK-1401ITA012378

PATIENT
  Sex: 0

DRUGS (1)
  1. SYCREST [Suspect]
     Route: 048

REACTIONS (2)
  - Hypotension [Unknown]
  - Sedation [Unknown]
